FAERS Safety Report 8807506 (Version 2)
Quarter: 2013Q1

REPORT INFORMATION
  Report Type: Spontaneous
  Country: CH (occurrence: CH)
  Receive Date: 20120925
  Receipt Date: 20130122
  Transmission Date: 20140127
  Serious: Yes (Other)
  Sender: FDA-Public Use
  Company Number: CH-PFIZER INC-2012232091

PATIENT
  Age: 62 Year
  Sex: Male
  Weight: 75 kg

DRUGS (11)
  1. VFEND [Suspect]
     Indication: ASPERGILLUS INFECTION
     Dosage: 200 MG, 4X/DAY
     Route: 048
     Dates: start: 20120205, end: 20120706
  2. SANDIMMUN NEORAL [Suspect]
     Indication: BONE MARROW TRANSPLANT REJECTION
     Dosage: 100 MG, 2X/DAY
     Route: 048
     Dates: start: 20120122, end: 20120212
  3. SANDIMMUN NEORAL [Suspect]
     Dosage: 200 MG, 2X/DAY
     Route: 048
     Dates: start: 20120213
  4. SANDIMMUN NEORAL [Suspect]
     Dosage: 75 MG, 1-2X/DAY
     Route: 048
  5. URSOFALK [Concomitant]
     Dosage: 250 MG, 3X/DAY
  6. BELOC ZOK [Concomitant]
     Dosage: 50 MG, 2X/DAY
     Route: 048
  7. PANTOZOL [Concomitant]
     Dosage: 40 MG, 1X/DAY
     Route: 048
  8. SAROTEN [Concomitant]
     Dosage: 25 MG, 1X/DAY
     Route: 048
  9. SUPRADYN [Concomitant]
     Dosage: 1 DF, 1X/DAY
     Route: 048
  10. NOPIL [Concomitant]
     Dosage: 1 DF, 3 PER 1 WEEK
     Route: 048
  11. VALTREX [Concomitant]
     Dosage: 500 MG, 2X/DAY
     Route: 048

REACTIONS (5)
  - Drug prescribing error [Recovered/Resolved]
  - Bone disorder [Recovered/Resolved]
  - Bone pain [Recovered/Resolved]
  - Renal failure acute [Recovering/Resolving]
  - Fluoride increased [Unknown]
